FAERS Safety Report 7472932-1 (Version None)
Quarter: 2011Q2

REPORT INFORMATION
  Report Type: 
  Country: None (occurrence: None)
  Receive Date: 20110511
  Receipt Date: 20110510
  Transmission Date: 20111010
  Serious: Yes (Hospitalization, Disabling, Other)
  Sender: FDA-Public Use
  Company Number: US-PFIZER INC-2011041617

PATIENT
  Sex: Female

DRUGS (8)
  1. PAXIL [Concomitant]
     Indication: DEPRESSION
     Dosage: UNK
     Dates: start: 19980101
  2. PROMETHAZINE [Concomitant]
     Indication: HYPERSENSITIVITY
     Dosage: UNK
     Dates: start: 20040101, end: 20090101
  3. ATENOLOL [Concomitant]
     Indication: TACHYCARDIA
     Dosage: UNK
     Dates: start: 19950101
  4. CHANTIX [Suspect]
     Indication: SMOKING CESSATION THERAPY
     Dosage: STARTER MONTH PACK
     Dates: start: 20070401, end: 20070501
  5. HYDROCODONE [Concomitant]
     Indication: BACK PAIN
     Dosage: UNK
     Dates: start: 20030101, end: 20090101
  6. CARISOPRODOL [Concomitant]
     Indication: BACK PAIN
     Dosage: UNK
     Dates: start: 20040101, end: 20090101
  7. RANITIDINE [Concomitant]
     Indication: GASTROOESOPHAGEAL REFLUX DISEASE
     Dosage: UNK
     Dates: start: 20050101, end: 20080101
  8. LEVAQUIN [Concomitant]
     Indication: BRONCHITIS
     Dosage: UNK
     Dates: start: 20030101, end: 20080101

REACTIONS (9)
  - DEPRESSION [None]
  - HALLUCINATIONS, MIXED [None]
  - SUICIDE ATTEMPT [None]
  - ANXIETY [None]
  - AGGRESSION [None]
  - NIGHTMARE [None]
  - PSYCHOTIC DISORDER [None]
  - PARANOIA [None]
  - PELVIC FRACTURE [None]
